FAERS Safety Report 14173002 (Version 1)
Quarter: 2017Q4

REPORT INFORMATION
  Report Type: Spontaneous
  Country: US (occurrence: None)
  Receive Date: 20171108
  Receipt Date: 20171108
  Transmission Date: 20180321
  Serious: Yes (Hospitalization)
  Sender: FDA-Public Use
  Company Number: None

PATIENT
  Age: 54 Year
  Sex: Female

DRUGS (16)
  1. FISH OIL [Concomitant]
     Active Substance: FISH OIL
  2. TIZANIDINE. [Concomitant]
     Active Substance: TIZANIDINE
  3. METHYLPRED [Concomitant]
     Active Substance: METHYLPREDNISOLONE
  4. TRAMADOL. [Concomitant]
     Active Substance: TRAMADOL
  5. ASA [Concomitant]
     Active Substance: ASPIRIN
  6. ONDANSETRON [Concomitant]
     Active Substance: ONDANSETRON
  7. DUOXETINE [Concomitant]
     Active Substance: DULOXETINE
  8. METFORMIN [Concomitant]
     Active Substance: METFORMIN HYDROCHLORIDE
  9. REBIF [Suspect]
     Active Substance: INTERFERON BETA-1A
     Indication: MULTIPLE SCLEROSIS
     Route: 058
     Dates: start: 20140814
  10. POTASSIUM [Concomitant]
     Active Substance: POTASSIUM
  11. PIOGLITAZONE. [Concomitant]
     Active Substance: PIOGLITAZONE
  12. CIPRO [Concomitant]
     Active Substance: CIPROFLOXACIN HYDROCHLORIDE
  13. D [Concomitant]
  14. LYRICA [Concomitant]
     Active Substance: PREGABALIN
  15. HYDROCO/APAP [Concomitant]
     Active Substance: ACETAMINOPHEN\HYDROCODONE
  16. AZITHROMYCIN ANHYDROUS. [Concomitant]
     Active Substance: AZITHROMYCIN ANHYDROUS

REACTIONS (2)
  - Blood glucose decreased [None]
  - Drug dose omission [None]

NARRATIVE: CASE EVENT DATE: 20171025
